FAERS Safety Report 8066584-X (Version None)
Quarter: 2012Q1

REPORT INFORMATION
  Report Type: 
  Country: None (occurrence: None)
  Receive Date: 20120124
  Receipt Date: 20120117
  Transmission Date: 20120608
  Serious: Yes (Death, Hospitalization)
  Sender: FDA-Public Use
  Company Number: PHEH2012US000816

PATIENT
  Sex: Female

DRUGS (3)
  1. EXJADE [Suspect]
     Dosage: 250 MG, TID
     Route: 048
     Dates: start: 20111202
  2. CELEBREX [Concomitant]
     Indication: NEOPLASM MALIGNANT
  3. NEXAVAR [Concomitant]
     Indication: NEOPLASM MALIGNANT

REACTIONS (4)
  - LIVER DISORDER [None]
  - HAEMODYNAMIC TEST ABNORMAL [None]
  - ABDOMINAL DISCOMFORT [None]
  - DEATH [None]
